FAERS Safety Report 7906136-2 (Version None)
Quarter: 2011Q4

REPORT INFORMATION
  Report Type: 
  Country: None (occurrence: None)
  Receive Date: 20111110
  Receipt Date: 20111103
  Transmission Date: 20120403
  Serious: Yes (Other)
  Sender: FDA-Public Use
  Company Number: JP-BAYER-2011-097118

PATIENT
  Age: 80 Year
  Sex: Male
  Weight: 72 kg

DRUGS (6)
  1. NEXAVAR [Suspect]
     Dosage: 400 MG
     Route: 048
     Dates: start: 20110217, end: 20110617
  2. HIRUDOID [Concomitant]
     Indication: PROPHYLAXIS
     Dosage: UNK
     Route: 061
     Dates: start: 20100909, end: 20100921
  3. UREPEARL [Concomitant]
     Indication: PROPHYLAXIS
     Dosage: UNK
     Route: 061
     Dates: start: 20100922
  4. NEXAVAR [Suspect]
     Dosage: 600 MG
     Route: 048
     Dates: start: 20101222, end: 20110217
  5. NEXAVAR [Suspect]
     Dosage: 200 MG
     Route: 048
     Dates: start: 20110715, end: 20110715
  6. NEXAVAR [Suspect]
     Indication: HEPATIC NEOPLASM MALIGNANT
     Dosage: 800 MG
     Route: 048
     Dates: start: 20101111, end: 20101222

REACTIONS (9)
  - DIARRHOEA [None]
  - LOW CARDIAC OUTPUT SYNDROME [None]
  - PLATELET COUNT DECREASED [None]
  - ERYTHEMA MULTIFORME [None]
  - GASTRITIS ATROPHIC [None]
  - PARONYCHIA [None]
  - OEDEMA PERIPHERAL [None]
  - GASTRIC ULCER [None]
  - RASH [None]
